FAERS Safety Report 7869165 (Version 2)
Quarter: 2013Q2

REPORT INFORMATION
  Report Type: Spontaneous
  Country: GB (occurrence: None)
  Receive Date: 20110228
  Receipt Date: 20130521
  Transmission Date: 20140414
  Serious: Yes (Congenital Anomaly)
  Sender: FDA-Public Use
  Company Number: GER/UKI/11/0017482

PATIENT
  Sex: Female
  Weight: 3.56 kg

DRUGS (5)
  1. OMEPRAZOLE [Suspect]
     Indication: GASTROINTESTINAL ULCER
     Dosage: 20 MG, 1 IN 1 D, TRANSPLACENTAL
     Route: 064
     Dates: start: 20081016
  2. ACETAMINOPHEN\CODEINE PHOSPHATE [Suspect]
     Indication: PAIN
     Dosage: 2 DOSAGE FORMS, AS REQUIRED, TRANSPLACENTAL
     Route: 064
     Dates: start: 20090106
  3. FOLIC ACID [Suspect]
     Indication: PREGNANCY
     Dosage: 1 DOSAGE FORMS, 1 IN 1 D, TRANSPLACENTAL
     Route: 064
     Dates: start: 200905
  4. HYDROXOCOBALAMIN [Suspect]
     Indication: VITAMIN B12 DEFICIENCY
     Dosage: 3 DOSAGE FORMS, 1 IN 1 M, TRANSPLACENTAL
     Route: 064
     Dates: start: 20091216
  5. LYRICA [Suspect]
     Indication: PAIN
     Dosage: 2 DOSAGE FORMS, 2 IN 1 D, TRANSPLACENTAL
     Route: 064
     Dates: start: 20080815

REACTIONS (6)
  - Developmental hip dysplasia [None]
  - PELVIC DEFORMITY [None]
  - Maternal drugs affecting foetus [None]
  - FORCEPS DELIVERY [None]
  - NEONATAL INFECTION [None]
  - Joint dislocation [None]
